FAERS Safety Report 8953257 (Version 1)
Quarter: 2012Q4

REPORT INFORMATION
  Report Type: 
  Country: US (occurrence: US)
  Receive Date: 20121206
  Receipt Date: 20121206
  Transmission Date: 20130627
  Serious: Yes (Other)
  Sender: FDA-Public Use
  Company Number: US-ROXANE LABORATORIES, INC.-2012-RO-02481RO

PATIENT
  Age: 33 Year
  Sex: Female

DRUGS (7)
  1. SERTRALINE [Suspect]
     Indication: DEPRESSION
     Dosage: 50 mg
  2. CITALOPRAM [Suspect]
     Indication: DEPRESSION
  3. OXCARBAZEPINE [Suspect]
     Indication: CONVULSION
  4. TRAMADOL [Suspect]
     Indication: NEURALGIA
  5. VENLAFAXINE [Suspect]
     Indication: DEPRESSION
     Dosage: 300 mg
  6. LAMOTRIGINE [Suspect]
     Indication: CONVULSION
     Dosage: 300 mg
  7. PHENYTOIN [Suspect]
     Indication: CONVULSION
     Dosage: 200 mg

REACTIONS (3)
  - Convulsion [Recovered/Resolved]
  - Drug ineffective [Unknown]
  - Weight increased [Unknown]
